FAERS Safety Report 14968802 (Version 1)
Quarter: 2018Q2

REPORT INFORMATION
  Report Type: Spontaneous
  Country: IN (occurrence: IN)
  Receive Date: 20180604
  Receipt Date: 20180604
  Transmission Date: 20180711
  Serious: Yes (Other)
  Sender: FDA-Public Use
  Company Number: IN-PFIZER INC-2018225748

PATIENT
  Age: 37 Year
  Sex: Female

DRUGS (4)
  1. DICLOFENAC EPOLAMINE [Suspect]
     Active Substance: DICLOFENAC EPOLAMINE
     Indication: INJURY
  2. DICLOFENAC EPOLAMINE [Suspect]
     Active Substance: DICLOFENAC EPOLAMINE
     Indication: ARTHRALGIA
     Dosage: UNK
     Route: 061
  3. DICLOFENAC [Suspect]
     Active Substance: DICLOFENAC
     Indication: ARTHRALGIA
     Dosage: 50 MG, TWICE A DAY
     Route: 048
  4. DICLOFENAC [Suspect]
     Active Substance: DICLOFENAC
     Indication: INJURY

REACTIONS (9)
  - Application site rash [Unknown]
  - Pyrexia [Unknown]
  - Malaise [Unknown]
  - Rash pruritic [Unknown]
  - Hypersensitivity [Unknown]
  - Urticaria [Unknown]
  - Face oedema [Unknown]
  - Dermatitis contact [Unknown]
  - Rash generalised [Unknown]
